FAERS Safety Report 6021192-7 (Version None)
Quarter: 2008Q4

REPORT INFORMATION
  Report Type: 
  Country: None (occurrence: None)
  Receive Date: 20081222
  Receipt Date: 20081209
  Transmission Date: 20090506
  Serious: Yes (Hospitalization, Other)
  Sender: FDA-Public Use
  Company Number: 55068

PATIENT
  Age: 26 Year
  Sex: Male

DRUGS (1)
  1. KETAMINE HCL [Suspect]

REACTIONS (20)
  - ASPIRATION [None]
  - BILIARY DILATATION [None]
  - BILIARY SEPSIS [None]
  - BLOOD CULTURE POSITIVE [None]
  - CIRCULATORY COLLAPSE [None]
  - CONTINUOUS HAEMODIAFILTRATION [None]
  - CYSTITIS [None]
  - DRUG ABUSE [None]
  - DYSPNOEA [None]
  - FALL [None]
  - HEART RATE INCREASED [None]
  - HEPATIC FUNCTION ABNORMAL [None]
  - HYDRONEPHROSIS [None]
  - METABOLIC ACIDOSIS [None]
  - PANCREATITIS [None]
  - RENAL FAILURE ACUTE [None]
  - RENAL TUBULAR DISORDER [None]
  - SOMNOLENCE [None]
  - STAPHYLOCOCCAL INFECTION [None]
  - TACHYPNOEA [None]
